FAERS Safety Report 9054147 (Version 6)
Quarter: 2013Q2

REPORT INFORMATION
  Report Type: Spontaneous
  Country: TR (occurrence: TR)
  Receive Date: 20130208
  Receipt Date: 20130611
  Transmission Date: 20140414
  Serious: Yes (Other)
  Sender: FDA-Public Use
  Company Number: TR-VERTEX PHARMACEUTICALS INC.-2013-001739

PATIENT
  Age: 50 Year
  Sex: Male

DRUGS (10)
  1. INCIVO [Suspect]
     Indication: HAEMOPHILIA
     Dosage: 375 MG, UNK (6 TIMES A DAY, STOPPED AFTER 12 WEEKS OF TREATMENT)
     Route: 048
     Dates: start: 20130123, end: 201304
  2. INCIVO [Suspect]
     Indication: HEPATITIS C
  3. INCIVO [Suspect]
     Indication: HEPATIC CIRRHOSIS
  4. RIBAVIRIN [Suspect]
     Indication: HAEMOPHILIA
     Dosage: 1000 MG, UNK
     Route: 065
     Dates: start: 20130123
  5. RIBAVIRIN [Suspect]
     Indication: HEPATIC CIRRHOSIS
     Dosage: 800 MG, UNK
     Route: 065
  6. RIBAVIRIN [Suspect]
     Dosage: UNK (REDUCED BY HALF AT THE 5TH WEEK, THEN WITHDRAWN FOR 3 DAYS AT THE 7TH WEEK)
     Route: 065
  7. RIBAVIRIN [Suspect]
     Dosage: 600 MG, UNK
     Route: 065
  8. RIBAVIRIN [Suspect]
     Dosage: 600 MG, UNK
     Route: 065
  9. PEG INTERFERON [Suspect]
     Indication: HAEMOPHILIA
     Dosage: 180 ?G, UNK
     Route: 065
     Dates: start: 20130123
  10. PEG INTERFERON [Suspect]
     Indication: HEPATIC CIRRHOSIS
     Dosage: 90 ?G, QW
     Route: 065

REACTIONS (8)
  - Leukopenia [Recovered/Resolved]
  - Anaemia [Recovered/Resolved]
  - Rash maculo-papular [Recovered/Resolved]
  - Thrombocytopenia [Not Recovered/Not Resolved]
  - Pruritus [Recovered/Resolved]
  - Weight decreased [Recovered/Resolved]
  - Skin lesion [Recovered/Resolved]
  - Asthenia [Recovered/Resolved]
